FAERS Safety Report 11037892 (Version 1)
Quarter: 2015Q2

REPORT INFORMATION
  Report Type: Spontaneous
  Country: IT (occurrence: IT)
  Receive Date: 20150416
  Receipt Date: 20150416
  Transmission Date: 20150821
  Serious: Yes (Other)
  Sender: FDA-Public Use
  Company Number: IT-TEVA-554731ACC

PATIENT
  Age: 77 Year
  Sex: Male

DRUGS (11)
  1. LORAZEPAM DOROM - 1 MG COMPRESSE - TEVA ITALIA S.R.L. [Suspect]
     Active Substance: LORAZEPAM
     Indication: ANXIETY
     Dosage: 2 MILLIGRAM DAILY; 2 MG DAILY
     Route: 048
  2. SERPAX - 30 MG COMPRESSE - MEDA PHARMA S.P.A. [Suspect]
     Active Substance: OXAZEPAM
     Indication: ANXIETY DISORDER
     Dosage: 90 MILLIGRAM DAILY; 90 MG DAILY
     Route: 048
  3. PANTORC -  20 MG CPR GASTRORESISTENTI [Concomitant]
     Indication: GASTRITIS
     Dosage: 20 MG; GASTRO-RESISTANT TABLET
     Route: 048
  4. TORVAST - 40 MG COMPRESSE [Concomitant]
     Indication: HYPERCHOLESTEROLAEMIA
     Dosage: 40 MG
     Route: 048
  5. AUGMENTIN [Concomitant]
     Active Substance: AMOXICILLIN\CLAVULANATE POTASSIUM
     Indication: BRONCHITIS
     Dosage: 2 MG
     Route: 048
     Dates: start: 20150302, end: 20150303
  6. CLENIL - 0,8 MG/2 ML SOSPENSIONE DA NEBULIZZARE [Concomitant]
     Indication: BRONCHITIS
     Dosage: 16 MG; NEBULISER SUSPENSION
     Route: 055
     Dates: start: 20150302, end: 20150303
  7. TALOFEN - 4 G/100 ML GOCCE ORALI SOLUZIONE [Concomitant]
     Indication: PSYCHOMOTOR HYPERACTIVITY
     Dosage: 30 GTT; ORAL DROPS, SOLUTION
     Route: 048
  8. LENDORMIN - 0,25 MG COMPRESSE - BOEHRINGER INGELHEIM ITALIA S.R.L [Suspect]
     Active Substance: BROTIZOLAM
     Indication: INSOMNIA
     Dosage: .5 MILLIGRAM DAILY; .5 MG DAILY
     Route: 048
  9. OLPRESS - 10 MG COMPRESSE RIVESTITE CON FILM [Concomitant]
     Indication: ESSENTIAL HYPERTENSION
     Dosage: 10 MG
     Route: 048
  10. CARDIOASPIRIN - 100 MG COMPRESSE GASTRORESISTENTI [Concomitant]
     Active Substance: ASPIRIN
     Indication: THROMBOSIS PROPHYLAXIS
     Dosage: 100 MG; GASTRO-RESISTANT TABLET
     Route: 048
  11. BENTELAN - 1,5 MG/2ML SOLUZIONE INIETTABILE [Concomitant]
     Indication: BRONCHITIS
     Dosage: 1.5 MG
     Route: 030
     Dates: start: 20150302, end: 20150303

REACTIONS (4)
  - Presyncope [Recovering/Resolving]
  - Dyspnoea [Recovering/Resolving]
  - Drug abuse [Recovering/Resolving]
  - Toxicity to various agents [Recovering/Resolving]

NARRATIVE: CASE EVENT DATE: 20150303
